FAERS Safety Report 20063604 (Version 1)
Quarter: 2021Q4

REPORT INFORMATION
  Report Type: Other
  Country: FR (occurrence: FR)
  Receive Date: 20211112
  Receipt Date: 20211112
  Transmission Date: 20220303
  Serious: Yes (Other)
  Sender: FDA-Public Use
  Company Number: None

PATIENT

DRUGS (4)
  1. VISIPAQUE [Interacting]
     Active Substance: IODIXANOL
     Indication: Therapeutic embolisation
     Dosage: 154 ML, SINGLE
     Route: 042
     Dates: start: 20200707, end: 20200707
  2. VISIPAQUE [Interacting]
     Active Substance: IODIXANOL
     Indication: Product used for unknown indication
  3. LIPIODOL [Interacting]
     Active Substance: ETHIODIZED OIL
     Indication: Therapeutic embolisation
     Dosage: 1 ML, SINGLE
     Route: 042
     Dates: start: 20200707, end: 20200707
  4. LIPIODOL [Interacting]
     Active Substance: ETHIODIZED OIL
     Indication: Product used for unknown indication

REACTIONS (2)
  - Drug interaction [Not Recovered/Not Resolved]
  - Hyperthyroidism [Not Recovered/Not Resolved]

NARRATIVE: CASE EVENT DATE: 20200707
